FAERS Safety Report 19544477 (Version 1)
Quarter: 2021Q3

REPORT INFORMATION
  Report Type: Report from Study
  Country: US (occurrence: US)
  Receive Date: 20210713
  Receipt Date: 20210713
  Transmission Date: 20211014
  Serious: Yes (Hospitalization, Other)
  Sender: FDA-Public Use
  Company Number: US-SA-2021SA101245

PATIENT
  Age: 73 Year
  Sex: Male

DRUGS (4)
  1. TERIFLUNOMIDE. [Suspect]
     Active Substance: TERIFLUNOMIDE
     Dosage: 14 MG, QD
     Route: 048
     Dates: start: 20171024, end: 202103
  2. TERIFLUNOMIDE. [Suspect]
     Active Substance: TERIFLUNOMIDE
     Indication: MULTIPLE SCLEROSIS
     Dosage: 7 MG, QD
     Route: 048
     Dates: start: 20171012, end: 20171023
  3. LASIX [Concomitant]
     Active Substance: FUROSEMIDE
  4. XARELTO [Concomitant]
     Active Substance: RIVAROXABAN

REACTIONS (17)
  - Aortic valve disease [Recovered/Resolved]
  - Condition aggravated [Unknown]
  - Hypertension [Unknown]
  - Pollakiuria [Not Recovered/Not Resolved]
  - Coordination abnormal [Not Recovered/Not Resolved]
  - Insomnia [Not Recovered/Not Resolved]
  - Chest pain [Not Recovered/Not Resolved]
  - Arthralgia [Not Recovered/Not Resolved]
  - Loss of control of legs [Unknown]
  - Muscular weakness [Unknown]
  - Tremor [Not Recovered/Not Resolved]
  - Unevaluable event [Not Recovered/Not Resolved]
  - Cerebrovascular accident [Unknown]
  - Peripheral artery haematoma [Recovered/Resolved]
  - Musculoskeletal discomfort [Not Recovered/Not Resolved]
  - Pain in extremity [Unknown]
  - Psoriasis [Unknown]

NARRATIVE: CASE EVENT DATE: 2018
